FAERS Safety Report 8430657-X (Version None)
Quarter: 2012Q2

REPORT INFORMATION
  Report Type: 
  Country: None (occurrence: None)
  Receive Date: 20120612
  Receipt Date: 20120604
  Transmission Date: 20120825
  Serious: Yes (Hospitalization, Other)
  Sender: FDA-Public Use
  Company Number: JP-VERTEX PHARMACEUTICALS INC.-AE-2012-001543

PATIENT
  Age: 61 Year
  Sex: Female

DRUGS (10)
  1. TELAVIC (TELAPREVIR) [Suspect]
     Indication: HEPATITIS C
     Route: 048
     Dates: start: 20120111, end: 20120118
  2. REBETOL [Concomitant]
     Route: 048
     Dates: start: 20120126, end: 20120216
  3. REBETOL [Concomitant]
     Route: 048
     Dates: start: 20120217, end: 20120305
  4. TELAVIC (TELAPREVIR) [Suspect]
     Route: 048
     Dates: start: 20120126, end: 20120305
  5. PEG-INTRON [Concomitant]
     Indication: HEPATITIS C
     Route: 058
     Dates: start: 20120111, end: 20120111
  6. PEG-INTRON [Concomitant]
     Route: 058
     Dates: start: 20120126, end: 20120302
  7. PEG-INTRON [Concomitant]
     Route: 058
     Dates: start: 20120314
  8. REBETOL [Concomitant]
     Indication: HEPATITIS C
     Route: 048
     Dates: start: 20120111, end: 20120118
  9. RABEPRAZOLE SODIUM [Concomitant]
     Route: 048
     Dates: start: 20120306, end: 20120501
  10. REBETOL [Concomitant]
     Route: 048
     Dates: start: 20120314

REACTIONS (4)
  - ERYTHEMA [None]
  - RASH PRURITIC [None]
  - RASH PAPULAR [None]
  - PLATELET COUNT DECREASED [None]
